FAERS Safety Report 23014983 (Version 1)
Quarter: 2023Q4

REPORT INFORMATION
  Report Type: Spontaneous
  Country: TR (occurrence: TR)
  Receive Date: 20231002
  Receipt Date: 20231002
  Transmission Date: 20240109
  Serious: Yes (Other)
  Sender: FDA-Public Use
  Company Number: TR-002147023-NVSC2023TR211078

PATIENT
  Age: 50 Year
  Sex: Female

DRUGS (1)
  1. CYCLOSPORINE [Suspect]
     Active Substance: CYCLOSPORINE
     Indication: Alopecia areata
     Dosage: 200 MG, QD (FROM JAN)
     Route: 065

REACTIONS (4)
  - Alopecia areata [Unknown]
  - Disease progression [Unknown]
  - Off label use [Unknown]
  - Product supply issue [Unknown]
